FAERS Safety Report 15733773 (Version 1)
Quarter: 2018Q4

REPORT INFORMATION
  Report Type: Report from Study
  Country: US (occurrence: US)
  Receive Date: 20181218
  Receipt Date: 20181218
  Transmission Date: 20190205
  Serious: No
  Sender: FDA-Public Use
  Company Number: PHEH2018US050517

PATIENT
  Sex: Male

DRUGS (1)
  1. RYDAPT [Suspect]
     Active Substance: MIDOSTAURIN
     Indication: MALIGNANT MAST CELL NEOPLASM
     Dosage: 25 MG, BID
     Route: 048

REACTIONS (2)
  - Nausea [Unknown]
  - Malaise [Unknown]
